FAERS Safety Report 10751785 (Version 1)
Quarter: 2015Q1

REPORT INFORMATION
  Report Type: Spontaneous
  Country: US (occurrence: None)
  Receive Date: 20150129
  Receipt Date: 20150129
  Transmission Date: 20150721
  Serious: Yes (Other)
  Sender: FDA-Public Use
  Company Number: None

PATIENT
  Age: 39 Year
  Sex: Male
  Weight: 76 kg

DRUGS (16)
  1. CALCIUM ACETATE. [Concomitant]
     Active Substance: CALCIUM ACETATE
  2. ACETAMINOPHEN. [Concomitant]
     Active Substance: ACETAMINOPHEN
  3. MORPHINE [Concomitant]
     Active Substance: MORPHINE
  4. TIGECYCLINE [Suspect]
     Active Substance: TIGECYCLINE
     Indication: INFECTION
     Route: 042
     Dates: start: 20150120, end: 20150125
  5. MEROPENEM. [Concomitant]
     Active Substance: MEROPENEM
  6. FAMOTIDINE. [Concomitant]
     Active Substance: FAMOTIDINE
  7. FENTANYL. [Concomitant]
     Active Substance: FENTANYL
  8. PROPOFOL. [Concomitant]
     Active Substance: PROPOFOL
  9. CIPROFLOXACIN. [Concomitant]
     Active Substance: CIPROFLOXACIN
  10. DOXYCYCLINE. [Concomitant]
     Active Substance: DOXYCYCLINE
  11. METHYLPREDNISOLONE. [Concomitant]
     Active Substance: METHYLPREDNISOLONE
  12. FLUCONAZOLE. [Concomitant]
     Active Substance: FLUCONAZOLE
  13. PROTONIX [Concomitant]
     Active Substance: PANTOPRAZOLE SODIUM
  14. NOREPINEPHRINE [Concomitant]
     Active Substance: NOREPINEPHRINE\NOREPINEPHRINE BITARTRATE
  15. TIGECYCLINE [Suspect]
     Active Substance: TIGECYCLINE
     Indication: STAPHYLOCOCCAL INFECTION
     Route: 042
     Dates: start: 20150120, end: 20150125
  16. REGULAR INSULIN [Concomitant]
     Active Substance: INSULIN NOS

REACTIONS (1)
  - Hyperbilirubinaemia [None]

NARRATIVE: CASE EVENT DATE: 20150120
